FAERS Safety Report 25840646 (Version 1)
Quarter: 2025Q3

REPORT INFORMATION
  Report Type: Spontaneous
  Country: US (occurrence: None)
  Receive Date: 20250923
  Receipt Date: 20250923
  Transmission Date: 20251020
  Serious: Yes (Death, Life-Threatening, Hospitalization)
  Sender: FDA-CTU
  Company Number: None

PATIENT
  Age: 84 Year
  Sex: Male
  Weight: 77.4 kg

DRUGS (2)
  1. COLUMVI [Suspect]
     Active Substance: GLOFITAMAB-GXBM
     Indication: Diffuse large B-cell lymphoma
     Dosage: FREQUENCY : EVERY 21 DAYS?
     Route: 041
     Dates: start: 20250108, end: 20250618
  2. GAZYVA [Suspect]
     Active Substance: OBINUTUZUMAB
     Indication: Diffuse large B-cell lymphoma
     Route: 041
     Dates: start: 20241230

REACTIONS (12)
  - Dizziness [None]
  - Muscular weakness [None]
  - Fatigue [None]
  - Fall [None]
  - Impaired driving ability [None]
  - Somnolence [None]
  - Depressed level of consciousness [None]
  - Urinary tract infection [None]
  - Drug interaction [None]
  - Balance disorder [None]
  - Confusional state [None]
  - Progressive multifocal leukoencephalopathy [None]

NARRATIVE: CASE EVENT DATE: 20250709
